FAERS Safety Report 5190836-4 (Version None)
Quarter: 2006Q4

REPORT INFORMATION
  Report Type: 
  Country: None (occurrence: None)
  Receive Date: 20061215
  Receipt Date: 20061208
  Transmission Date: 20070319
  Serious: Yes (Hospitalization, Other)
  Sender: FDA-Public Use
  Company Number: AUWYE792411DEC06

PATIENT
  Age: 78 Year
  Sex: Female

DRUGS (11)
  1. TAZOCIN [Suspect]
     Indication: OSTEOMYELITIS
     Dosage: 13.5 GRAM DAILY; INTRAVENOUS
     Route: 042
     Dates: start: 20060213, end: 20060302
  2. CALTRATE                       (CALCIUM CARBONATE) [Suspect]
  3. AVAPRO [Concomitant]
  4. WARFARIN SODIUM [Concomitant]
  5. DIAFORMIN (METFORMIN HYDROCHLORIDE) [Concomitant]
  6. DIGOXIN [Concomitant]
  7. IMDUR [Concomitant]
  8. ENDONE          (OXYCODONE HYDROCHLORIDE) [Concomitant]
  9. PREDNISONE TAB [Concomitant]
  10. ENOXAPARIN SODIUM [Concomitant]
  11. RANITIDINE [Concomitant]

REACTIONS (2)
  - PRURITUS GENERALISED [None]
  - RASH MORBILLIFORM [None]
